FAERS Safety Report 7238992-8 (Version None)
Quarter: 2011Q1

REPORT INFORMATION
  Report Type: 
  Country: None (occurrence: None)
  Receive Date: 20110121
  Receipt Date: 20101224
  Transmission Date: 20110831
  Serious: Yes (Other)
  Sender: FDA-Public Use
  Company Number: JP-PFIZER INC-2010179548

PATIENT
  Age: 49 Year
  Sex: Male

DRUGS (4)
  1. LIVACT [Concomitant]
     Dosage: UNK
     Route: 048
  2. CELECOXIB [Suspect]
     Dosage: 200 MG DAILY
     Route: 048
     Dates: start: 20100101
  3. HALCION [Concomitant]
     Dosage: UNK
     Route: 048
  4. TAKEPRON [Concomitant]
     Dosage: UNK
     Route: 048

REACTIONS (1)
  - TETANY [None]
